FAERS Safety Report 9097213 (Version 1)
Quarter: 2013Q1

REPORT INFORMATION
  Report Type: Spontaneous
  Country: DE (occurrence: DE)
  Receive Date: 20130212
  Receipt Date: 20130212
  Transmission Date: 20140127
  Serious: Yes (Other)
  Sender: FDA-Public Use
  Company Number: DE-INCYTE CORPORATION-2013IN000254

PATIENT
  Sex: Female

DRUGS (1)
  1. JAKAVI [Suspect]
     Dosage: 20 MG, UNK

REACTIONS (1)
  - Cerebrovascular accident [Unknown]
